FAERS Safety Report 5230626-7 (Version None)
Quarter: 2007Q1

REPORT INFORMATION
  Report Type: 
  Country: None (occurrence: None)
  Receive Date: 20070206
  Receipt Date: 20070131
  Transmission Date: 20070707
  Serious: Yes (Other)
  Sender: FDA-Public Use
  Company Number: GB-GLAXOSMITHKLINE-B0359490A

PATIENT
  Sex: Female

DRUGS (6)
  1. SEROXAT [Suspect]
     Route: 065
     Dates: start: 20010701, end: 20041108
  2. ZOPICLONE [Concomitant]
     Route: 065
  3. DIAZEPAM [Concomitant]
     Route: 065
  4. CARBAMAZEPINE [Concomitant]
     Route: 065
     Dates: start: 20040401
  5. FLUOXETINE [Concomitant]
     Route: 065
     Dates: start: 20041001
  6. TEMAZEPAM [Concomitant]

REACTIONS (27)
  - AGITATION [None]
  - AGORAPHOBIA [None]
  - ANOREXIA [None]
  - ANXIETY [None]
  - CHOKING SENSATION [None]
  - CLAUSTROPHOBIA [None]
  - CONVULSION [None]
  - CRYING [None]
  - DEPRESSED MOOD [None]
  - DISTURBANCE IN ATTENTION [None]
  - DRUG WITHDRAWAL SYNDROME [None]
  - HEAD INJURY [None]
  - HEADACHE [None]
  - INCONTINENCE [None]
  - INSOMNIA [None]
  - LOSS OF CONSCIOUSNESS [None]
  - MALAISE [None]
  - MUSCULOSKELETAL STIFFNESS [None]
  - NIGHTMARE [None]
  - OVERDOSE [None]
  - PANIC ATTACK [None]
  - POOR QUALITY SLEEP [None]
  - PSYCHOTIC DISORDER [None]
  - SOCIAL AVOIDANT BEHAVIOUR [None]
  - SUICIDAL IDEATION [None]
  - VISION BLURRED [None]
  - VOMITING [None]
